FAERS Safety Report 7020018-2 (Version None)
Quarter: 2010Q3

REPORT INFORMATION
  Report Type: 
  Country: None (occurrence: None)
  Receive Date: 20100927
  Receipt Date: 20100922
  Transmission Date: 20110219
  Serious: Yes (Hospitalization)
  Sender: FDA-Public Use
  Company Number: 2010SP001092

PATIENT
  Age: 18 Year
  Sex: Male
  Weight: 75.3 kg

DRUGS (5)
  1. CICLESONIDE HFA [Suspect]
     Indication: RHINITIS PERENNIAL
     Dosage: 160 UG; QD; NASAL
     Route: 045
     Dates: start: 20100326, end: 20100408
  2. CICLESONIDE HFA [Suspect]
     Indication: RHINITIS PERENNIAL
     Dosage: 160 UG; QD; NASAL
     Route: 045
     Dates: start: 20100410
  3. ALBUTEROL [Concomitant]
  4. CLARITIN /00917501/ [Concomitant]
  5. BLINDED THERAPY [Concomitant]

REACTIONS (2)
  - APPENDICITIS [None]
  - GASTROINTESTINAL SOUNDS ABNORMAL [None]
